FAERS Safety Report 23457274 (Version 1)
Quarter: 2024Q1

REPORT INFORMATION
  Report Type: Spontaneous
  Country: US (occurrence: None)
  Receive Date: 20240130
  Receipt Date: 20240130
  Transmission Date: 20240410
  Serious: Yes (Hospitalization)
  Sender: FDA-Public Use
  Company Number: None

PATIENT
  Sex: Male

DRUGS (2)
  1. OPSUMIT [Suspect]
     Active Substance: MACITENTAN
     Indication: Pulmonary arterial hypertension
     Dosage: 10MG DAILY ORAL?
     Route: 048
     Dates: start: 202309
  2. UPTRAVI [Concomitant]
     Active Substance: SELEXIPAG

REACTIONS (11)
  - Blood pressure decreased [None]
  - Nausea [None]
  - Vomiting [None]
  - Oedema [None]
  - Arthralgia [None]
  - Decreased appetite [None]
  - Lethargy [None]
  - Dyspnoea [None]
  - Fatigue [None]
  - Weight decreased [None]
  - Disorientation [None]
